FAERS Safety Report 6953946-4 (Version None)
Quarter: 2010Q3

REPORT INFORMATION
  Report Type: 
  Country: None (occurrence: None)
  Receive Date: 20100829
  Receipt Date: 20100630
  Transmission Date: 20110219
  Serious: No
  Sender: FDA-Public Use
  Company Number: US-ABBOTT-10P-163-0654847-00

PATIENT
  Sex: Male
  Weight: 101.7 kg

DRUGS (1)
  1. NIASPAN [Suspect]
     Indication: PRODUCT USED FOR UNKNOWN INDICATION
     Dosage: AT BEDTIME

REACTIONS (5)
  - COUGH [None]
  - FLUSHING [None]
  - HYPERSENSITIVITY [None]
  - LYME DISEASE [None]
  - PRURITUS [None]
